FAERS Safety Report 5012336-4 (Version None)
Quarter: 2006Q2

REPORT INFORMATION
  Report Type: 
  Country: None (occurrence: None)
  Receive Date: 20060414
  Receipt Date: 20051229
  Transmission Date: 20061013
  Serious: No
  Sender: FDA-Public Use
  Company Number: 2005SP004558

PATIENT
  Age: 85 Year
  Sex: Female
  Weight: 51.7101 kg

DRUGS (5)
  1. LUNESTA [Suspect]
     Indication: DEMENTIA ALZHEIMER'S TYPE
     Dosage: 3 MG;HS;ORAL
     Route: 048
     Dates: start: 20051201
  2. LUNESTA [Suspect]
     Indication: INSOMNIA
     Dosage: 3 MG;HS;ORAL
     Route: 048
     Dates: start: 20051201
  3. SALICYLIC ACID [Concomitant]
  4. TOPROL-XL [Concomitant]
  5. LISINOPRIL [Concomitant]

REACTIONS (1)
  - MIDDLE INSOMNIA [None]
